FAERS Safety Report 5487545-0 (Version None)
Quarter: 2007Q4

REPORT INFORMATION
  Report Type: 
  Country: None (occurrence: None)
  Receive Date: 20071016
  Receipt Date: 20071005
  Transmission Date: 20080405
  Serious: Yes (Other)
  Sender: FDA-Public Use
  Company Number: JP-PFIZER INC-2007085286

PATIENT
  Sex: Female

DRUGS (2)
  1. NORVASC [Suspect]
     Indication: HYPERTENSION
     Dosage: DAILY DOSE:5MG
     Route: 048
  2. ALL OTHER THERAPEUTIC PRODUCTS [Concomitant]

REACTIONS (2)
  - HYPOACUSIS [None]
  - TINNITUS [None]
